FAERS Safety Report 7723186-X (Version None)
Quarter: 2011Q3

REPORT INFORMATION
  Report Type: 
  Country: None (occurrence: None)
  Receive Date: 20110901
  Receipt Date: 20110822
  Transmission Date: 20111222
  Serious: Yes (Other)
  Sender: FDA-Public Use
  Company Number: US-RANBAXY-2011RR-47136

PATIENT
  Sex: Female

DRUGS (12)
  1. LEVAQUIN [Suspect]
     Dosage: 500 MG, QD, FOR 5 TO 10 DAYS
     Route: 048
     Dates: start: 20090102
  2. LEVAQUIN [Suspect]
     Indication: DIVERTICULITIS
     Dosage: 500 MG, QD, FOR 5 TO 10 DAYS
     Route: 048
     Dates: start: 20010124
  3. LEVAQUIN [Suspect]
     Dosage: 500 MG, QD, FOR 5 TO 10 DAYS
     Route: 048
     Dates: start: 20081224
  4. LEVAQUIN [Suspect]
     Dosage: 500 MG, QD, FOR 5 TO 10 DAYS
     Route: 048
     Dates: start: 20081117
  5. LEVAQUIN [Suspect]
     Dosage: 500 MG, QD, FOR 5 TO 10 DAYS
     Route: 048
     Dates: start: 20070402
  6. LEVAQUIN [Suspect]
     Dosage: 500 MG, QD, FOR 5 TO 10 DAYS
     Route: 048
     Dates: start: 20010201
  7. LEVAQUIN [Suspect]
     Indication: URINARY TRACT INFECTION
     Dosage: 500 MG, QD, FOR 5 TO 10 DAYS
     Route: 048
     Dates: start: 20000616
  8. LEVAQUIN [Suspect]
     Dosage: 500 MG, QD, FOR 5 TO 10 DAYS
     Route: 048
     Dates: start: 20070331
  9. OMEPRAZOLE [Concomitant]
     Indication: GASTROOESOPHAGEAL REFLUX DISEASE
     Dosage: UNK
     Route: 065
  10. CIPROFLOXACIN [Suspect]
     Indication: URINARY TRACT INFECTION
     Dosage: UNK
     Route: 065
  11. LEVAQUIN [Suspect]
     Dosage: 500 MG, QD, FOR 5 TO 10 DAYS
     Route: 048
     Dates: start: 20090420
  12. METHYLPREDNISOLONE [Suspect]
     Indication: PRODUCT USED FOR UNKNOWN INDICATION
     Route: 065

REACTIONS (2)
  - MUSCLE RUPTURE [None]
  - TENDONITIS [None]
